FAERS Safety Report 22651974 (Version 1)
Quarter: 2023Q2

REPORT INFORMATION
  Report Type: Spontaneous
  Country: CN (occurrence: CN)
  Receive Date: 20230628
  Receipt Date: 20230628
  Transmission Date: 20230722
  Serious: Yes (Other)
  Sender: FDA-Public Use
  Company Number: CN-Eisai Medical Research-EC-2023-142989

PATIENT
  Age: 63 Year
  Sex: Male

DRUGS (2)
  1. LENVATINIB [Suspect]
     Active Substance: LENVATINIB
     Indication: Pancreatic carcinoma
     Route: 048
     Dates: start: 20200702
  2. GIMERACIL\OTERACIL\TEGAFUR [Concomitant]
     Active Substance: GIMERACIL\OTERACIL\OTERACIL POTASSIUM\TEGAFUR
     Indication: Pancreatic carcinoma
     Dosage: DOSE AND FREQUENCY UNKNOWN.
     Route: 048
     Dates: start: 20200702

REACTIONS (7)
  - Pancreatitis acute [Recovering/Resolving]
  - Hypothyroidism [Recovering/Resolving]
  - Mouth ulceration [Recovering/Resolving]
  - Diarrhoea [Recovering/Resolving]
  - Rash [Recovering/Resolving]
  - Asthenia [Recovering/Resolving]
  - Hypertension [Recovering/Resolving]
